FAERS Safety Report 24029709 (Version 1)
Quarter: 2024Q2

REPORT INFORMATION
  Report Type: Spontaneous
  Country: US (occurrence: US)
  Receive Date: 20240628
  Receipt Date: 20240628
  Transmission Date: 20240716
  Serious: Yes (Death, Hospitalization, Other)
  Sender: FDA-Public Use
  Company Number: US-AMGEN-USASP2024124386

PATIENT
  Age: 52 Year
  Sex: Male

DRUGS (3)
  1. PREDNISONE [Suspect]
     Active Substance: PREDNISONE
     Indication: End stage renal disease
     Dosage: UNK
     Route: 065
  2. MYCOPHENOLATE MOFETIL [Concomitant]
     Active Substance: MYCOPHENOLATE MOFETIL
     Indication: End stage renal disease
  3. TACROLIMUS [Concomitant]
     Active Substance: TACROLIMUS
     Indication: End stage renal disease

REACTIONS (11)
  - Death [Fatal]
  - Sepsis [Unknown]
  - Cytomegalovirus viraemia [Unknown]
  - Epstein-Barr viraemia [Unknown]
  - Acute kidney injury [Unknown]
  - Electrocardiogram ST segment elevation [Unknown]
  - Encephalopathy [Unknown]
  - Acute respiratory distress syndrome [Unknown]
  - Haemophagocytic lymphohistiocytosis [Unknown]
  - Tuberculosis [Unknown]
  - Multiple organ dysfunction syndrome [Unknown]
